FAERS Safety Report 16060377 (Version 1)
Quarter: 2019Q1

REPORT INFORMATION
  Report Type: Other
  Country: US (occurrence: US)
  Receive Date: 20190312
  Receipt Date: 20190312
  Transmission Date: 20190418
  Serious: Yes (Other)
  Sender: FDA-Public Use
  Company Number: US-DEXPHARM-20190178

PATIENT
  Age: 50 Year
  Sex: Female

DRUGS (4)
  1. HYDROCHLOROTHIAZIDE. [Suspect]
     Active Substance: HYDROCHLOROTHIAZIDE
  2. NAPROXEN. [Suspect]
     Active Substance: NAPROXEN
     Dosage: AS NEEDED
  3. OMEPRAZOLE. [Suspect]
     Active Substance: OMEPRAZOLE
  4. PEMBROLIZUMAB. [Suspect]
     Active Substance: PEMBROLIZUMAB
     Indication: MALIGNANT MELANOMA

REACTIONS (1)
  - Tubulointerstitial nephritis [Recovering/Resolving]
